FAERS Safety Report 8348793-5 (Version None)
Quarter: 2012Q2

REPORT INFORMATION
  Report Type: 
  Country: None (occurrence: None)
  Receive Date: 20120510
  Receipt Date: 20120502
  Transmission Date: 20120825
  Serious: No
  Sender: FDA-Public Use
  Company Number: US-PFIZER INC-2012111054

PATIENT
  Sex: Female

DRUGS (1)
  1. LO/OVRAL-28 [Suspect]
     Indication: CONTRACEPTION
     Dosage: UNK

REACTIONS (3)
  - PRODUCT QUALITY ISSUE [None]
  - INAPPROPRIATE SCHEDULE OF DRUG ADMINISTRATION [None]
  - UNINTENDED PREGNANCY [None]
